FAERS Safety Report 15869217 (Version 6)
Quarter: 2020Q3

REPORT INFORMATION
  Report Type: Report from Study
  Country: BR (occurrence: BR)
  Receive Date: 20190125
  Receipt Date: 20190329
  Transmission Date: 20201105
  Serious: Yes (Death, Life-Threatening, Hospitalization)
  Sender: FDA-Public Use
  Company Number: BR-JNJFOC-20181210310

PATIENT
  Age: 19 Year
  Sex: Female
  Weight: 69.2 kg

DRUGS (6)
  1. ETOPOSIDE. [Suspect]
     Active Substance: ETOPOSIDE
     Indication: LYMPHOMA
     Dosage: FREQUENCY PER PROTOCOL
     Route: 042
     Dates: start: 20181122
  2. IBRUTINIB [Suspect]
     Active Substance: IBRUTINIB
     Indication: LYMPHOMA
     Route: 048
     Dates: start: 20181120
  3. RITUXIMAB. [Suspect]
     Active Substance: RITUXIMAB
     Indication: LYMPHOMA
     Dosage: FREQUENCY PER PROTOCOL
     Route: 042
     Dates: start: 20181120
  4. CARBOPLATIN. [Suspect]
     Active Substance: CARBOPLATIN
     Indication: LYMPHOMA
     Dosage: FREQUENCY PER PROTOCOL
     Route: 042
     Dates: start: 20181122
  5. IFOSFAMIDE. [Suspect]
     Active Substance: IFOSFAMIDE
     Indication: LYMPHOMA
     Route: 042
     Dates: start: 20181122
  6. IBRUTINIB [Suspect]
     Active Substance: IBRUTINIB
     Route: 048

REACTIONS (11)
  - Thrombocytopenia [Unknown]
  - Sepsis [Recovered/Resolved]
  - Renal failure [Recovering/Resolving]
  - Multiple organ dysfunction syndrome [Fatal]
  - Acute kidney injury [Recovered/Resolved]
  - Neutropenia [Unknown]
  - Septic shock [Not Recovered/Not Resolved]
  - Hepatic encephalopathy [Recovered/Resolved]
  - Hepatic failure [Recovered/Resolved]
  - Febrile neutropenia [Recovered/Resolved]
  - Anaemia [Unknown]

NARRATIVE: CASE EVENT DATE: 20181206
